FAERS Safety Report 9739407 (Version 2)
Quarter: 2013Q4

REPORT INFORMATION
  Report Type: Spontaneous
  Country: US (occurrence: US)
  Receive Date: 20131209
  Receipt Date: 20131209
  Transmission Date: 20140711
  Serious: No
  Sender: FDA-Public Use
  Company Number: US-BRISTOL-MYERS SQUIBB COMPANY-18594721

PATIENT
  Age: 78 Year
  Sex: Female

DRUGS (2)
  1. IXEMPRA FOR INJ [Suspect]
     Dosage: NO. OF. INFUSIONS: 3?DISCONTINUED AND REASON WAS NOT PROVIDED
     Route: 042
     Dates: start: 20121201, end: 20130601
  2. BENADRYL [Suspect]
     Route: 042

REACTIONS (2)
  - Somnolence [Unknown]
  - Neuropathy peripheral [Unknown]
